FAERS Safety Report 14211771 (Version 1)
Quarter: 2017Q4

REPORT INFORMATION
  Report Type: Report from Study
  Country: TW (occurrence: TW)
  Receive Date: 20171121
  Receipt Date: 20171121
  Transmission Date: 20180321
  Serious: Yes (Death, Life-Threatening, Hospitalization)
  Sender: FDA-Public Use
  Company Number: TW-ACTELION-A-NJ2017-162959

PATIENT
  Sex: Female
  Weight: 47.17 kg

DRUGS (1)
  1. VENTAVIS [Suspect]
     Active Substance: ILOPROST
     Indication: PULMONARY ARTERIAL HYPERTENSION
     Dosage: UNK, Q4HRS
     Route: 055
     Dates: start: 20130530, end: 20171115

REACTIONS (3)
  - Petechiae [Unknown]
  - Jaundice [Unknown]
  - Death [Fatal]

NARRATIVE: CASE EVENT DATE: 20171115
